FAERS Safety Report 7751669-5 (Version None)
Quarter: 2011Q3

REPORT INFORMATION
  Report Type: 
  Country: None (occurrence: None)
  Receive Date: 20110914
  Receipt Date: 20110906
  Transmission Date: 20111222
  Serious: Yes (Other)
  Sender: FDA-Public Use
  Company Number: JP-AMGEN-JPNCT2011046772

PATIENT
  Age: 79 Year
  Sex: Female
  Weight: 45 kg

DRUGS (10)
  1. PANITUMUMAB [Suspect]
     Indication: COLORECTAL CANCER
     Dosage: 4.8 MG/KG, Q2WK
     Route: 041
     Dates: start: 20110520, end: 20110819
  2. LOXONIN [Concomitant]
     Dosage: UNK
     Route: 048
  3. ANTIHISTAMINES [Concomitant]
     Indication: PROPHYLAXIS
     Dosage: UNK
     Route: 065
  4. ALFAROL [Concomitant]
     Dosage: UNK
     Route: 048
  5. LIVALO [Concomitant]
     Dosage: UNK
     Route: 048
  6. IRINOTECAN HCL [Concomitant]
     Indication: COLORECTAL CANCER
     Route: 041
     Dates: start: 20110520
  7. VITAMEDIN [Concomitant]
     Dosage: UNK
     Route: 048
  8. ADALAT [Concomitant]
     Dosage: UNK
     Route: 048
  9. MUCOSTA [Concomitant]
     Dosage: UNK
     Route: 048
  10. CORTICOSTEROIDS [Concomitant]
     Indication: PROPHYLAXIS
     Dosage: UNK
     Route: 065

REACTIONS (1)
  - WHITE BLOOD CELL COUNT DECREASED [None]
